FAERS Safety Report 14990908 (Version 1)
Quarter: 2018Q2

REPORT INFORMATION
  Report Type: Report from Study
  Country: ES (occurrence: ES)
  Receive Date: 20180608
  Receipt Date: 20180608
  Transmission Date: 20180711
  Serious: Yes (Death, Hospitalization)
  Sender: FDA-Public Use
  Company Number: ES-ASTRAZENECA-2018SE08299

PATIENT
  Age: 849 Month
  Sex: Female

DRUGS (6)
  1. OMEPRAZOL [Concomitant]
     Active Substance: OMEPRAZOLE
     Indication: PROPHYLAXIS AGAINST GASTROINTESTINAL ULCER
     Dates: start: 20160408
  2. CHONDROITIN SULFATE [Concomitant]
     Active Substance: CHONDROITIN SULFATE (BOVINE)
     Indication: ANTIINFLAMMATORY THERAPY
     Dates: start: 201510
  3. CHONDROITIN SULFATE [Concomitant]
     Active Substance: CHONDROITIN SULFATE (BOVINE)
     Indication: RHEUMATIC DISORDER
     Dates: start: 201510
  4. TAGRISSO [Suspect]
     Active Substance: OSIMERTINIB
     Indication: NON-SMALL CELL LUNG CANCER
     Route: 048
     Dates: start: 20160413, end: 20180108
  5. OXICODONA HIDROCLORURO [Concomitant]
     Indication: DRUG WITHDRAWAL MAINTENANCE THERAPY
     Dates: start: 201510
  6. NALOXONE HYDROCHLORIDE. [Concomitant]
     Active Substance: NALOXONE HYDROCHLORIDE
     Indication: DRUG WITHDRAWAL MAINTENANCE THERAPY
     Dates: start: 201510

REACTIONS (2)
  - Cardiotoxicity [Not Recovered/Not Resolved]
  - Pulmonary toxicity [Fatal]

NARRATIVE: CASE EVENT DATE: 20180112
